FAERS Safety Report 21947080 (Version 5)
Quarter: 2023Q2

REPORT INFORMATION
  Report Type: Report from Study
  Country: US (occurrence: US)
  Receive Date: 20230202
  Receipt Date: 20230424
  Transmission Date: 20230722
  Serious: No
  Sender: FDA-Public Use
  Company Number: US-002147023-NVSC2023US018193

PATIENT
  Sex: Female

DRUGS (2)
  1. KESIMPTA [Suspect]
     Active Substance: OFATUMUMAB
     Indication: Multiple sclerosis
     Dosage: 20 MG, QW (FIRST INJECTION)
     Route: 058
     Dates: start: 20230122
  2. KESIMPTA [Suspect]
     Active Substance: OFATUMUMAB
     Dosage: 20 MG, QW (SECOND INJECTION)
     Route: 058

REACTIONS (10)
  - Initial insomnia [Unknown]
  - Abnormal dreams [Unknown]
  - Oral pruritus [Unknown]
  - Tongue pruritus [Recovered/Resolved]
  - Pruritus [Unknown]
  - Injection site pain [Unknown]
  - Injection site haemorrhage [Unknown]
  - Myalgia [Unknown]
  - Injection site discharge [Unknown]
  - Device malfunction [Unknown]
